FAERS Safety Report 4336576-2 (Version None)
Quarter: 2004Q2

REPORT INFORMATION
  Report Type: 
  Country: None (occurrence: None)
  Receive Date: 20040409
  Receipt Date: 20040409
  Transmission Date: 20050107
  Serious: Yes (Hospitalization)
  Sender: FDA-Public Use
  Company Number: None

PATIENT
  Age: 84 Year
  Sex: Female
  Weight: 63.5 kg

DRUGS (3)
  1. IBUPROFEN [Suspect]
     Indication: BACK PAIN
     Dosage: 4-5 DAILY ORAL
     Route: 048
     Dates: start: 20040120, end: 20040127
  2. ALEVE [Suspect]
     Indication: BACK PAIN
     Dosage: 220 MG 1-2 DAILY PAIN
     Dates: start: 20040120, end: 20040127
  3. ATACAND HCT [Concomitant]

REACTIONS (1)
  - RENAL FAILURE ACUTE [None]
